FAERS Safety Report 11499139 (Version 2)
Quarter: 2017Q1

REPORT INFORMATION
  Report Type: Spontaneous
  Country: US (occurrence: US)
  Receive Date: 20150913
  Receipt Date: 20170208
  Transmission Date: 20170428
  Serious: Yes (Hospitalization, Other)
  Sender: FDA-Public Use
  Company Number: US-ELI_LILLY_AND_COMPANY-US201509001952

PATIENT
  Sex: Female
  Weight: 90.7 kg

DRUGS (3)
  1. XANAX [Concomitant]
     Active Substance: ALPRAZOLAM
     Dosage: 2 MG, TID
  2. CYMBALTA [Suspect]
     Active Substance: DULOXETINE HYDROCHLORIDE
     Indication: PAIN
     Dosage: 60 MG, QD
     Route: 048
  3. CYMBALTA [Suspect]
     Active Substance: DULOXETINE HYDROCHLORIDE
     Indication: DEPRESSION

REACTIONS (19)
  - Vertigo [Unknown]
  - Fatigue [Unknown]
  - Irritability [Unknown]
  - Nausea [Unknown]
  - Sleep disorder [Unknown]
  - Anxiety [Unknown]
  - Hypomania [Unknown]
  - Transaminases increased [Unknown]
  - Mood swings [Unknown]
  - Drug withdrawal syndrome [Unknown]
  - Sensory disturbance [Unknown]
  - Suicidal ideation [Unknown]
  - Nightmare [Unknown]
  - Confusional state [Unknown]
  - Lethargy [Unknown]
  - Suicide attempt [Unknown]
  - Dizziness [Unknown]
  - Paraesthesia [Unknown]
  - Agitation [Unknown]
